FAERS Safety Report 11359783 (Version 4)
Quarter: 2015Q3

REPORT INFORMATION
  Report Type: Spontaneous
  Country: US (occurrence: US)
  Receive Date: 20150809
  Receipt Date: 20150810
  Transmission Date: 20151125
  Serious: Yes (Other)
  Sender: FDA-Public Use
  Company Number: US-DRREDDYS-USA/USA/15/0049863

PATIENT
  Age: 5 Month

DRUGS (2)
  1. TOPOTECAN HYDROCHLORIDE FOR INJECTION [Suspect]
     Active Substance: TOPOTECAN HYDROCHLORIDE
     Indication: RETINOBLASTOMA
     Dosage: 0.3 MG/20 ML
     Route: 065
  2. MELPHALAN [Suspect]
     Active Substance: MELPHALAN
     Indication: RETINOBLASTOMA
     Dosage: 5 MG/20 ML
     Route: 065

REACTIONS (6)
  - Toxicity to various agents [Unknown]
  - Iris atrophy [Unknown]
  - Retinal ischaemia [Unknown]
  - Enophthalmos [Unknown]
  - Retinal artery occlusion [Unknown]
  - Scleritis [Unknown]
